FAERS Safety Report 20868553 (Version 1)
Quarter: 2022Q2

REPORT INFORMATION
  Report Type: Spontaneous
  Country: US (occurrence: None)
  Receive Date: 20220524
  Receipt Date: 20220524
  Transmission Date: 20220721
  Serious: Yes (Death)
  Sender: FDA-Public Use
  Company Number: None

PATIENT
  Age: 90 Year
  Sex: Female

DRUGS (1)
  1. DROXIDOPA [Suspect]
     Active Substance: DROXIDOPA
     Indication: Orthostatic hypotension
     Dosage: 400 MG 3 TIMES DAILY ORAL?
     Route: 048
     Dates: start: 202011, end: 202204

REACTIONS (2)
  - Death [None]
  - Hypertension [None]

NARRATIVE: CASE EVENT DATE: 20220428
